FAERS Safety Report 9371809 (Version 1)
Quarter: 2013Q2

REPORT INFORMATION
  Report Type: Report from Study
  Country: US (occurrence: US)
  Receive Date: 20130627
  Receipt Date: 20130627
  Transmission Date: 20140414
  Serious: Yes (Hospitalization, Other)
  Sender: FDA-Public Use
  Company Number: US-MYLANLABS-2012S1005273

PATIENT
  Age: 58 Year
  Sex: Male

DRUGS (9)
  1. CLOZAPINE TABLETS [Suspect]
     Indication: SCHIZOPHRENIA
     Route: 048
     Dates: start: 201111, end: 20120711
  2. CLOZAPINE TABLETS [Suspect]
     Indication: SCHIZOPHRENIA
     Route: 048
     Dates: start: 20111117, end: 20120711
  3. DEPAKOTE ER [Concomitant]
     Dosage: 500MG TABLET
  4. CLONAZEPAM [Concomitant]
  5. LACTULOSE [Concomitant]
  6. AMBIEN [Concomitant]
     Route: 048
  7. ATIVAN [Concomitant]
     Route: 048
  8. RISPERDAL [Concomitant]
     Route: 048
  9. TRAZODONE [Concomitant]
     Route: 048

REACTIONS (1)
  - Granulocytopenia [Not Recovered/Not Resolved]
